FAERS Safety Report 8045017 (Version 6)
Quarter: 2014Q1

REPORT INFORMATION
  Report Type: Report from Study
  Country: US (occurrence: US)
  Receive Date: 20110720
  Receipt Date: 20140328
  Transmission Date: 20141002
  Serious: Yes (Hospitalization)
  Sender: FDA-Public Use
  Company Number: US-JNJFOC-20110704681

PATIENT
  Age: 18 Year
  Sex: Female
  Weight: 43.09 kg

DRUGS (9)
  1. INFLIXIMAB, RECOMBINANT [Suspect]
     Indication: CROHN^S DISEASE
     Route: 042
     Dates: start: 20080115, end: 20080908
  2. MULTIVITAMINS [Concomitant]
  3. HYDROCORTISONE [Concomitant]
  4. B12 [Concomitant]
  5. FOLIC ACID [Concomitant]
  6. VITAMIN B COMPLEX [Concomitant]
  7. VITAMIN C [Concomitant]
  8. VITAMIN D W/ CALCIUM [Concomitant]
  9. FERROUS SULFATE [Concomitant]

REACTIONS (1)
  - Crohn^s disease [Recovered/Resolved with Sequelae]
